FAERS Safety Report 22097899 (Version 2)
Quarter: 2023Q2

REPORT INFORMATION
  Report Type: Spontaneous
  Country: CA (occurrence: CA)
  Receive Date: 20230315
  Receipt Date: 20230414
  Transmission Date: 20230722
  Serious: Yes (Other)
  Sender: FDA-Public Use
  Company Number: CA-CELLTRION INC.-2023CA005445

PATIENT

DRUGS (3)
  1. INFLECTRA [Suspect]
     Active Substance: INFLIXIMAB-DYYB
     Indication: Crohn^s disease
     Dosage: 238 MG, W0, W2, W6 AND Q8 WEEKS (WEEK 0)
     Route: 042
     Dates: start: 20230221
  2. INFLECTRA [Suspect]
     Active Substance: INFLIXIMAB-DYYB
     Dosage: 238 MG, EVERY 8 WEEKS (WEEK 2)
     Route: 042
     Dates: start: 20230307
  3. INFLECTRA [Suspect]
     Active Substance: INFLIXIMAB-DYYB
     Dosage: 238 MG, W0, W2, W6 AND Q8 WEEKS
     Route: 042
     Dates: start: 20230405

REACTIONS (2)
  - Abdominal pain [Recovering/Resolving]
  - Condition aggravated [Recovering/Resolving]
